FAERS Safety Report 8779827 (Version 2)
Quarter: 2012Q4

REPORT INFORMATION
  Report Type: 
  Country: US (occurrence: US)
  Receive Date: 20120912
  Receipt Date: 20120928
  Transmission Date: 20130627
  Serious: Yes (Hospitalization, Other)
  Sender: FDA-Public Use
  Company Number: US-ACTELION-A-US2012-70938

PATIENT
  Age: 56 Year
  Sex: Female

DRUGS (1)
  1. TRACLEER [Suspect]
     Indication: PULMONARY ARTERIAL HYPERTENSION
     Dosage: UNK
     Route: 048
     Dates: start: 20120210

REACTIONS (4)
  - Gallbladder operation [Recovering/Resolving]
  - Post procedural complication [Recovering/Resolving]
  - Haemorrhage [Recovering/Resolving]
  - Transfusion [Recovering/Resolving]
